FAERS Safety Report 10029049 (Version 1)
Quarter: 2014Q1

REPORT INFORMATION
  Report Type: Report from Study
  Country: US (occurrence: US)
  Receive Date: 20140321
  Receipt Date: 20140321
  Transmission Date: 20141002
  Serious: Yes (Other)
  Sender: FDA-Public Use
  Company Number: US-ABBVIE-14P-163-1212009-00

PATIENT
  Age: 40 Year
  Sex: Female

DRUGS (6)
  1. HUMIRA [Suspect]
     Indication: CROHN^S DISEASE
     Dosage: ON THURSDAY
     Route: 058
     Dates: start: 201303
  2. HUMIRA [Suspect]
     Route: 058
     Dates: start: 2013
  3. BACTRIM [Suspect]
     Indication: INFECTED CYST
     Dosage: 800MG/160MG
     Route: 048
     Dates: start: 20140305, end: 20140309
  4. D3 [Concomitant]
     Indication: PRODUCT USED FOR UNKNOWN INDICATION
     Dosage: OVER THE COUNTER DAILY
     Route: 048
  5. OVER THE COUNTER CRANBERRY PILLS [Concomitant]
     Indication: PRODUCT USED FOR UNKNOWN INDICATION
     Dosage: SOMETIMES
     Route: 048
  6. ADVIL [Concomitant]
     Indication: PAIN
     Route: 048

REACTIONS (6)
  - Muscle disorder [Not Recovered/Not Resolved]
  - Tendon disorder [Not Recovered/Not Resolved]
  - Cyst [Not Recovered/Not Resolved]
  - Infected cyst [Not Recovered/Not Resolved]
  - Nausea [Recovered/Resolved]
  - Mood altered [Recovered/Resolved]
